FAERS Safety Report 21446253 (Version 2)
Quarter: 2022Q4

REPORT INFORMATION
  Report Type: Spontaneous
  Country: US (occurrence: US)
  Receive Date: 20221012
  Receipt Date: 20221121
  Transmission Date: 20230113
  Serious: No
  Sender: FDA-Public Use
  Company Number: US-SA-SAC20221006001371

PATIENT
  Sex: Female
  Weight: 134 kg

DRUGS (2)
  1. DUPIXENT [Suspect]
     Active Substance: DUPILUMAB
     Indication: Nasal polyps
     Dosage: 300 MG, QOW
     Route: 058
     Dates: end: 2022
  2. NUCALA [Suspect]
     Active Substance: MEPOLIZUMAB
     Dosage: UNK

REACTIONS (10)
  - Injection site rash [Not Recovered/Not Resolved]
  - Injection site exfoliation [Not Recovered/Not Resolved]
  - Hypoaesthesia [Unknown]
  - Injection site paraesthesia [Unknown]
  - Oral infection [Unknown]
  - Injection site hypoaesthesia [Unknown]
  - Mobility decreased [Unknown]
  - Insomnia [Unknown]
  - Toothache [Unknown]
  - Sinusitis [Unknown]
